FAERS Safety Report 5703129-0 (Version None)
Quarter: 2008Q2

REPORT INFORMATION
  Report Type: 
  Country: None (occurrence: None)
  Receive Date: 20080411
  Receipt Date: 20080331
  Transmission Date: 20081010
  Serious: Yes (Life-Threatening, Hospitalization)
  Sender: FDA-Public Use
  Company Number: GB-PFIZER INC-2008022125

PATIENT
  Sex: Female

DRUGS (10)
  1. AROMASIN [Suspect]
     Indication: BREAST CANCER
     Route: 048
     Dates: start: 20050907, end: 20080305
  2. ACETYLSALICYLIC ACID SRT [Concomitant]
     Dosage: DAILY DOSE:75MG
  3. LISINOPRIL [Concomitant]
     Dosage: DAILY DOSE:10MG
  4. CLOPIDOGREL [Concomitant]
     Dosage: DAILY DOSE:75MG
  5. FUROSEMIDE [Concomitant]
     Dosage: DAILY DOSE:80MG
  6. GLICLAZIDE [Concomitant]
  7. BISOPROLOL FUMARATE [Concomitant]
     Dosage: DAILY DOSE:1.25MG
  8. SIMVASTATIN [Concomitant]
     Dosage: DAILY DOSE:10MG
  9. SPIRONOLACTONE [Concomitant]
     Dosage: DAILY DOSE:12.5MG
  10. SERTRALINE [Concomitant]
     Dosage: DAILY DOSE:50MG

REACTIONS (3)
  - ACUTE CORONARY SYNDROME [None]
  - ACUTE MYOCARDIAL INFARCTION [None]
  - CORONARY ARTERY DISEASE [None]
